FAERS Safety Report 18238361 (Version 1)
Quarter: 2020Q3

REPORT INFORMATION
  Report Type: Spontaneous
  Country: FR (occurrence: FR)
  Receive Date: 20200907
  Receipt Date: 20200907
  Transmission Date: 20201103
  Serious: Yes (Other)
  Sender: FDA-Public Use
  Company Number: FR-PFIZER INC-2020341780

PATIENT
  Age: 18 Year
  Sex: Male

DRUGS (4)
  1. TRAMADOL HYDROCHLORIDE. [Suspect]
     Active Substance: TRAMADOL HYDROCHLORIDE
     Indication: DRUG ABUSE
     Dosage: UNK, UNSPECIFIED
     Route: 048
  2. CANNABIS [Suspect]
     Active Substance: CANNABIS SATIVA SUBSP. INDICA TOP
     Indication: DRUG ABUSE
     Dosage: UNK, UNSPECIFIED
     Route: 055
     Dates: start: 2016
  3. COCAINE [Suspect]
     Active Substance: COCAINE
     Indication: DRUG ABUSE
     Dosage: UNK, UNSPECIFIED
     Route: 005
     Dates: start: 2019
  4. ALPRAZOLAM. [Suspect]
     Active Substance: ALPRAZOLAM
     Indication: DRUG ABUSE
     Dosage: UNK, UNSPECIFIED
     Route: 048

REACTIONS (3)
  - Memory impairment [Recovered/Resolved]
  - Loss of consciousness [Recovered/Resolved]
  - Drug abuse [Not Recovered/Not Resolved]
